FAERS Safety Report 12980532 (Version 1)
Quarter: 2016Q4

REPORT INFORMATION
  Report Type: Report from Study
  Country: None (occurrence: US)
  Receive Date: 20161128
  Receipt Date: 20161128
  Transmission Date: 20170207
  Serious: Yes (Life-Threatening, Hospitalization, Other)
  Sender: FDA-Public Use
  Company Number: US-ABBVIE-16K-163-1741883-00

PATIENT
  Age: 21 Year
  Sex: Male

DRUGS (1)
  1. HUMIRA [Suspect]
     Active Substance: ADALIMUMAB
     Indication: COLITIS ULCERATIVE
     Route: 058
     Dates: start: 20160706, end: 201609

REACTIONS (9)
  - Colitis [Recovered/Resolved]
  - Atelectasis [Unknown]
  - Nausea [Recovered/Resolved]
  - Hepatic steatosis [Not Recovered/Not Resolved]
  - Clostridium difficile infection [Recovered/Resolved]
  - Renal cyst [Not Recovered/Not Resolved]
  - Clostridium difficile infection [Recovered/Resolved]
  - Vomiting [Recovered/Resolved]
  - Gallbladder enlargement [Unknown]

NARRATIVE: CASE EVENT DATE: 201607
